FAERS Safety Report 17186043 (Version 1)
Quarter: 2019Q4

REPORT INFORMATION
  Report Type: Spontaneous
  Country: CA (occurrence: CA)
  Receive Date: 20191220
  Receipt Date: 20191220
  Transmission Date: 20200122
  Serious: Yes (Hospitalization, Other)
  Sender: FDA-Public Use
  Company Number: CA-JNJFOC-20191219551

PATIENT
  Age: 63 Year
  Sex: Female

DRUGS (3)
  1. ZOPICLONE [Concomitant]
     Active Substance: ZOPICLONE
     Dosage: EVERY NIGHT AT BEDTIME
     Route: 065
  2. DUROGESIC [Suspect]
     Active Substance: FENTANYL
     Indication: PAIN
     Route: 062
  3. PREGABALIN. [Concomitant]
     Active Substance: PREGABALIN
     Route: 065

REACTIONS (12)
  - Executive dysfunction [Unknown]
  - Troponin increased [Unknown]
  - Toxicity to various agents [Unknown]
  - Overdose [Unknown]
  - Amnestic disorder [Not Recovered/Not Resolved]
  - Demyelination [Unknown]
  - Unresponsive to stimuli [Recovered/Resolved]
  - Brain injury [Recovered/Resolved]
  - Hypotension [Unknown]
  - Hypoxic-ischaemic encephalopathy [Unknown]
  - Respiratory depression [Unknown]
  - Transaminases increased [Unknown]
